FAERS Safety Report 20692643 (Version 1)
Quarter: 2022Q2

REPORT INFORMATION
  Report Type: Spontaneous
  Country: US (occurrence: None)
  Receive Date: 20220409
  Receipt Date: 20220409
  Transmission Date: 20220721
  Serious: No
  Sender: FDA-Public Use
  Company Number: 2022A137332

PATIENT
  Age: 830 Month
  Sex: Female
  Weight: 68 kg

DRUGS (1)
  1. BUDESONIDE\FORMOTEROL\GLYCOPYRRONIUM [Suspect]
     Active Substance: BUDESONIDE\FORMOTEROL\GLYCOPYRRONIUM
     Indication: Chronic obstructive pulmonary disease
     Dosage: 160MCG/9MCG/4.8MCG
     Route: 055
     Dates: start: 20220101

REACTIONS (2)
  - Cough [Unknown]
  - Device malfunction [Unknown]

NARRATIVE: CASE EVENT DATE: 20220201
